FAERS Safety Report 23532156 (Version 1)
Quarter: 2024Q1

REPORT INFORMATION
  Report Type: Spontaneous
  Country: US (occurrence: US)
  Receive Date: 20240216
  Receipt Date: 20240216
  Transmission Date: 20240410
  Serious: No
  Sender: FDA-Public Use
  Company Number: US-SA-SAC20240208000665

PATIENT
  Sex: Female

DRUGS (1)
  1. DUPIXENT [Suspect]
     Active Substance: DUPILUMAB
     Indication: Dermatitis atopic
     Dosage: 300 MG, QOW
     Route: 058
     Dates: start: 202204

REACTIONS (7)
  - Myopia [Unknown]
  - Astigmatism [Unknown]
  - Conjunctivitis [Unknown]
  - Blepharitis [Unknown]
  - Keratitis [Unknown]
  - Eye pruritus [Unknown]
  - Dry eye [Unknown]
